FAERS Safety Report 9061865 (Version 1)
Quarter: 2013Q1

REPORT INFORMATION
  Report Type: Spontaneous
  Country: US (occurrence: None)
  Receive Date: 20130122
  Receipt Date: 20130122
  Transmission Date: 20140127
  Serious: Yes (Death)
  Sender: FDA-Public Use
  Company Number: 2013MA000362

PATIENT
  Age: 51 Year
  Sex: Female

DRUGS (6)
  1. KADIAN [Suspect]
     Indication: PRODUCT USED FOR UNKNOWN INDICATION
     Dosage: ; UNK; UNK
  2. OXYCODONE HCL [Suspect]
     Dosage: ; UNK; UNK
  3. DIAZEPAM TABLETS USP, 10 MG (PUREPAC) (DIAZEPAM) [Suspect]
     Dosage: ; UNK; UNK
  4. ACETAMINOPHEN\HYDROCODONE [Suspect]
     Dosage: ; UNK; UNK
  5. CARISOPRODOL [Suspect]
     Dosage: ; UNK; UNK
  6. PANCRELIPASE [Suspect]
     Dosage: ; UNK; UNK

REACTIONS (1)
  - Completed suicide [None]
